FAERS Safety Report 25200738 (Version 1)
Quarter: 2025Q2

REPORT INFORMATION
  Report Type: Spontaneous
  Country: FR (occurrence: FR)
  Receive Date: 20250415
  Receipt Date: 20250415
  Transmission Date: 20250717
  Serious: Yes (Death)
  Sender: ANI
  Company Number: FR-ANIPHARMA-2025-FR-000064

PATIENT
  Age: 79 Year
  Sex: Male
  Weight: 95 kg

DRUGS (12)
  1. CANDESARTAN CILEXETIL AND HYDROCHLOROTHIAZIDE [Suspect]
     Active Substance: CANDESARTAN CILEXETIL\HYDROCHLOROTHIAZIDE
     Indication: Product used for unknown indication
     Dates: start: 20240815
  2. TAMSULOSIN [Suspect]
     Active Substance: TAMSULOSIN
     Dates: start: 20240815
  3. BACLOFEN [Suspect]
     Active Substance: BACLOFEN
     Dates: start: 20240815
  4. PAROXETINE [Suspect]
     Active Substance: PAROXETINE
     Dates: start: 20240815
  5. ATORVASTATIN [Suspect]
     Active Substance: ATORVASTATIN
     Dates: start: 20240815
  6. QUETIAPINE [Suspect]
     Active Substance: QUETIAPINE
     Route: 048
     Dates: start: 202407
  7. PANTOPRAZOLE [Suspect]
     Active Substance: PANTOPRAZOLE
  8. RISPERDAL [Suspect]
     Active Substance: RISPERIDONE
     Route: 048
     Dates: start: 20240725
  9. OXAZEPAM [Suspect]
     Active Substance: OXAZEPAM
     Route: 048
     Dates: start: 202407
  10. FUROSEMIDE [Suspect]
     Active Substance: FUROSEMIDE
     Dates: start: 20240815
  11. BISOPROLOL [Suspect]
     Active Substance: BISOPROLOL
     Dates: start: 20240815
  12. FINASTERIDE [Suspect]
     Active Substance: FINASTERIDE
     Dates: start: 20240815

REACTIONS (3)
  - Dysphagia [Fatal]
  - General physical health deterioration [Fatal]
  - Acute kidney injury [Fatal]

NARRATIVE: CASE EVENT DATE: 20240801
